FAERS Safety Report 22199245 (Version 1)
Quarter: 2023Q2

REPORT INFORMATION
  Report Type: Spontaneous
  Country: BE (occurrence: BE)
  Receive Date: 20230411
  Receipt Date: 20230411
  Transmission Date: 20230722
  Serious: Yes (Other)
  Sender: FDA-Public Use
  Company Number: BE-NAARI PTE LIMITED-2023NP000024

PATIENT
  Age: 29 Year
  Sex: Female

DRUGS (2)
  1. DESOGESTREL AND ETHINYL ESTRADIOL [Suspect]
     Active Substance: DESOGESTREL\ETHINYL ESTRADIOL
     Indication: Contraception
     Dosage: THE WOMAN RECEIVED ETHINYLESTRADIOL/DESOGESTREL PILLS, UNKNOWN
     Route: 065
  2. JANSSEN COVID-19 VACCINE [Suspect]
     Active Substance: AD26.COV2.S
     Indication: COVID-19 immunisation
     Dosage: THE WOMAN RECEIVED FIRST DOSE OF AD26.COV2-S COVID-19 VACCINE
     Route: 065

REACTIONS (1)
  - Acute macular neuroretinopathy [Not Recovered/Not Resolved]
